FAERS Safety Report 9542492 (Version 1)
Quarter: 2013Q3

REPORT INFORMATION
  Report Type: Report from Study
  Country: CA (occurrence: CA)
  Receive Date: 20130923
  Receipt Date: 20130923
  Transmission Date: 20140515
  Serious: Yes (Other)
  Sender: FDA-Public Use
  Company Number: PHHY2013CA104609

PATIENT
  Age: 48 Year
  Sex: Female

DRUGS (6)
  1. GILENYA [Suspect]
     Indication: RELAPSING-REMITTING MULTIPLE SCLEROSIS
     Dosage: 0.5 MG, QD
     Route: 048
     Dates: start: 20130916
  2. VENTOLIN                           /00942701/ [Concomitant]
  3. SYMBICORT [Concomitant]
  4. CHAMPIX [Concomitant]
     Dosage: 1 MG, QD
  5. LEVONORGESTREL + ETINILESTRADIOL [Concomitant]
     Indication: CONTRACEPTION
  6. CLONAZEPAM [Concomitant]
     Dosage: 0.5 MG, UNK

REACTIONS (5)
  - Blood pressure decreased [Unknown]
  - Sinus bradycardia [Unknown]
  - Sinus arrhythmia [Unknown]
  - Fatigue [Unknown]
  - Headache [Recovered/Resolved]
